FAERS Safety Report 5872970-6 (Version None)
Quarter: 2008Q3

REPORT INFORMATION
  Report Type: 
  Country: None (occurrence: None)
  Receive Date: 20080905
  Receipt Date: 20080826
  Transmission Date: 20090109
  Serious: Yes (Other)
  Sender: FDA-Public Use
  Company Number: US-PFIZER INC-2008071638

PATIENT
  Age: 59 Year
  Sex: Female
  Weight: 67.272 kg

DRUGS (11)
  1. CHANTIX [Suspect]
     Indication: SMOKING CESSATION THERAPY
  2. XANAX [Suspect]
  3. WELLBUTRIN [Concomitant]
  4. PREDNISONE TAB [Concomitant]
  5. COMBIVENT [Concomitant]
  6. ALL OTHER THERAPEUTIC PRODUCTS [Concomitant]
  7. OXYGEN [Concomitant]
  8. COREG [Concomitant]
  9. LASIX [Concomitant]
  10. ALL OTHER THERAPEUTIC PRODUCTS [Concomitant]
  11. ALL OTHER THERAPEUTIC PRODUCTS [Concomitant]

REACTIONS (1)
  - HOMICIDAL IDEATION [None]
